FAERS Safety Report 5361264-3 (Version None)
Quarter: 2007Q2

REPORT INFORMATION
  Report Type: 
  Country: None (occurrence: None)
  Receive Date: 20070614
  Receipt Date: 20070604
  Transmission Date: 20071010
  Serious: Yes (Hospitalization)
  Sender: FDA-Public Use
  Company Number: 2007-02686

PATIENT
  Age: 40 Year
  Sex: Female
  Weight: 73 kg

DRUGS (1)
  1. TRELSTAR DEPOT [Suspect]
     Indication: ASSISTED FERTILISATION
     Dosage: SINGLE, SUCUTANEOUS
     Route: 058
     Dates: start: 20061005, end: 20061005

REACTIONS (3)
  - INJECTION SITE ABSCESS [None]
  - INJECTION SITE RASH [None]
  - SUBCUTANEOUS ABSCESS [None]
